FAERS Safety Report 4681967-3 (Version None)
Quarter: 2005Q2

REPORT INFORMATION
  Report Type: 
  Country: None (occurrence: None)
  Receive Date: 20050606
  Receipt Date: 20050531
  Transmission Date: 20051028
  Serious: Yes (Death)
  Sender: FDA-Public Use
  Company Number: PHHO2005JP08670

PATIENT
  Sex: Male

DRUGS (8)
  1. LOCHOL [Suspect]
     Indication: HYPERCHOLESTEROLAEMIA
     Dosage: 20 MG, QD
     Route: 048
     Dates: start: 20001025
  2. SYMMETREL [Concomitant]
  3. ABILIT [Concomitant]
  4. RISPERDAL [Concomitant]
  5. RENIVACE [Concomitant]
  6. PANALDINE [Concomitant]
  7. ADALAT [Concomitant]
  8. LULLAN [Concomitant]

REACTIONS (1)
  - HYPERTENSIVE HEART DISEASE [None]
